FAERS Safety Report 19103690 (Version 2)
Quarter: 2021Q3

REPORT INFORMATION
  Report Type: Spontaneous
  Country: US (occurrence: US)
  Receive Date: 20210407
  Receipt Date: 20210706
  Transmission Date: 20211014
  Serious: Yes (Other)
  Sender: FDA-Public Use
  Company Number: US-GILEAD-2021-0524280

PATIENT
  Sex: Female

DRUGS (1)
  1. TRUVADA [Suspect]
     Active Substance: EMTRICITABINE\TENOFOVIR DISOPROXIL FUMARATE
     Indication: HIV INFECTION
     Dosage: UNK
     Route: 048
     Dates: start: 2014, end: 2017

REACTIONS (10)
  - Anhedonia [Unknown]
  - Bone density decreased [Unknown]
  - Osteopenia [Unknown]
  - Emotional distress [Unknown]
  - Osteonecrosis [Unknown]
  - Tooth loss [Unknown]
  - Bone loss [Unknown]
  - Pain [Unknown]
  - Chronic kidney disease [Unknown]
  - Anxiety [Unknown]
